FAERS Safety Report 13741470 (Version 1)
Quarter: 2017Q3

REPORT INFORMATION
  Report Type: Spontaneous
  Country: US (occurrence: US)
  Receive Date: 20170711
  Receipt Date: 20170711
  Transmission Date: 20171127
  Serious: Yes (Life-Threatening, Other)
  Sender: FDA-Public Use
  Company Number: US-ZYDUS-015729

PATIENT
  Age: 21 Year
  Sex: Male

DRUGS (2)
  1. ENOXAPARIN/ENOXAPARIN SODIUM [Suspect]
     Active Substance: ENOXAPARIN\ENOXAPARIN SODIUM
     Indication: THROMBOSIS PROPHYLAXIS
     Route: 065
  2. WARFARIN [Suspect]
     Active Substance: WARFARIN
     Indication: PRODUCT USED FOR UNKNOWN INDICATION
     Route: 065

REACTIONS (6)
  - Intra-abdominal haematoma [Recovering/Resolving]
  - Activated partial thromboplastin time prolonged [Recovering/Resolving]
  - Haemodynamic instability [Recovering/Resolving]
  - Gastrointestinal haemorrhage [Recovering/Resolving]
  - Mucosal haemorrhage [Recovering/Resolving]
  - Factor VIII deficiency [Recovering/Resolving]
